FAERS Safety Report 15231959 (Version 2)
Quarter: 2018Q3

REPORT INFORMATION
  Report Type: Spontaneous
  Country: US (occurrence: US)
  Receive Date: 20180802
  Receipt Date: 20180829
  Transmission Date: 20181010
  Serious: Yes (Hospitalization, Other)
  Sender: FDA-Public Use
  Company Number: US-SA-2018SA207577

PATIENT
  Age: 83 Year
  Sex: Female

DRUGS (1)
  1. DUPIXENT [Suspect]
     Active Substance: DUPILUMAB
     Dosage: 150 MG/ML, QOW
     Route: 058
     Dates: start: 20180411

REACTIONS (5)
  - Incoherent [Unknown]
  - Urinary tract infection [Recovering/Resolving]
  - Dehydration [Recovering/Resolving]
  - Transient ischaemic attack [Unknown]
  - Confusional state [Unknown]

NARRATIVE: CASE EVENT DATE: 20180817
